FAERS Safety Report 13352319 (Version 1)
Quarter: 2017Q1

REPORT INFORMATION
  Report Type: Spontaneous
  Country: US (occurrence: US)
  Receive Date: 20170320
  Receipt Date: 20170320
  Transmission Date: 20170429
  Serious: No
  Sender: FDA-Public Use
  Company Number: US-SA-2017SA001791

PATIENT
  Age: 91 Year
  Sex: Female
  Weight: 56.67 kg

DRUGS (2)
  1. NASACORT ALLERGY 24HR [Suspect]
     Active Substance: TRIAMCINOLONE ACETONIDE
     Indication: RHINORRHOEA
     Dosage: START DATE 3 WEEKS, DOSAGE FORM SPRAY, DOSAGE ONE SPRAY IN EACH NOSTRIL
     Route: 045
     Dates: start: 20161203, end: 20161230
  2. NASACORT ALLERGY 24HR [Suspect]
     Active Substance: TRIAMCINOLONE ACETONIDE
     Indication: MULTIPLE ALLERGIES
     Dosage: START DATE 3 WEEKS, DOSAGE FORM SPRAY, DOSAGE ONE SPRAY IN EACH NOSTRIL
     Route: 045
     Dates: start: 20161203, end: 20161230

REACTIONS (1)
  - Cough [Recovered/Resolved]

NARRATIVE: CASE EVENT DATE: 20161225
